FAERS Safety Report 16201774 (Version 1)
Quarter: 2019Q2

REPORT INFORMATION
  Report Type: Spontaneous
  Country: JP (occurrence: JP)
  Receive Date: 20190416
  Receipt Date: 20190416
  Transmission Date: 20190711
  Serious: Yes (Hospitalization, Other)
  Sender: FDA-Public Use
  Company Number: JP-009507513-1902JPN001700J

PATIENT
  Age: 71 Year
  Sex: Male
  Weight: 44 kg

DRUGS (3)
  1. CARBOPLATIN. [Concomitant]
     Active Substance: CARBOPLATIN
     Indication: NON-SMALL CELL LUNG CANCER
     Dosage: 625 MILLIGRAM
     Route: 041
     Dates: start: 20190215, end: 201902
  2. KEYTRUDA [Suspect]
     Active Substance: PEMBROLIZUMAB
     Indication: NON-SMALL CELL LUNG CANCER
     Dosage: 200 MILLIGRAM, Q3W
     Route: 041
     Dates: start: 20190215, end: 20190215
  3. PEMETREXED DISODIUM [Concomitant]
     Active Substance: PEMETREXED DISODIUM
     Indication: NON-SMALL CELL LUNG CANCER
     Dosage: 700.5 MILLIGRAM, Q3W
     Route: 041
     Dates: start: 20190215, end: 201902

REACTIONS (5)
  - Organising pneumonia [Recovering/Resolving]
  - Liver disorder [Recovering/Resolving]
  - Sinus tachycardia [Recovered/Resolved]
  - Decreased appetite [Recovered/Resolved]
  - Supraventricular extrasystoles [Recovered/Resolved]

NARRATIVE: CASE EVENT DATE: 20190217
